FAERS Safety Report 6994248-X (Version None)
Quarter: 2010Q3

REPORT INFORMATION
  Report Type: 
  Country: None (occurrence: None)
  Receive Date: 20100917
  Receipt Date: 20071018
  Transmission Date: 20110219
  Serious: Yes (Other)
  Sender: FDA-Public Use
  Company Number: US-ASTRAZENECA-2007UW10879

PATIENT
  Age: 36 Year
  Sex: Female
  Weight: 80.7 kg

DRUGS (10)
  1. SEROQUEL [Suspect]
     Route: 048
     Dates: start: 20040811
  2. SEROQUEL [Suspect]
     Route: 048
     Dates: start: 20060501
  3. ABILIFY [Concomitant]
  4. WELLBUTRIN SR [Concomitant]
     Dosage: 100 MG BID TO 150 MG BID
     Dates: start: 20010309
  5. RISPERDAL [Concomitant]
     Dosage: 2 MG HALF QAM, QHS TO 2 MG BID
     Dates: start: 20010503
  6. TRILEPTAL [Concomitant]
     Indication: AFFECTIVE DISORDER
     Dosage: 300 MG QAM, 600 MG QHS
     Route: 048
     Dates: start: 20050201
  7. TRILEPTAL [Concomitant]
     Indication: CONVULSION
     Dosage: 300 MG QAM, 600 MG QHS
     Route: 048
     Dates: start: 20050201
  8. FLUOXETINE [Concomitant]
     Route: 048
     Dates: start: 20050201
  9. DIAZEPAM [Concomitant]
     Route: 048
     Dates: start: 20050201
  10. TRAZODONE HCL [Concomitant]
     Dates: start: 20050201

REACTIONS (2)
  - CONVULSION [None]
  - DIABETES MELLITUS [None]
